FAERS Safety Report 25071543 (Version 1)
Quarter: 2025Q1

REPORT INFORMATION
  Report Type: Spontaneous
  Country: US (occurrence: US)
  Receive Date: 20250312
  Receipt Date: 20250312
  Transmission Date: 20250409
  Serious: Yes (Hospitalization)
  Sender: BAUSCH AND LOMB
  Company Number: US-BAUSCHBL-2025BNL003995

PATIENT
  Sex: Female

DRUGS (1)
  1. CVS EYEWASH [Suspect]
     Active Substance: WATER
     Indication: Product used for unknown indication
     Route: 065

REACTIONS (2)
  - Eye disorder [Unknown]
  - Expired product administered [Unknown]
